FAERS Safety Report 16489256 (Version 1)
Quarter: 2019Q2

REPORT INFORMATION
  Report Type: Spontaneous
  Country: US (occurrence: US)
  Receive Date: 20190628
  Receipt Date: 20190628
  Transmission Date: 20190711
  Serious: No
  Sender: FDA-Public Use
  Company Number: US-ACCORD-095083

PATIENT
  Sex: Male

DRUGS (1)
  1. CLONAZEPAM ACCORD [Suspect]
     Active Substance: CLONAZEPAM
     Indication: PANIC ATTACK
     Dosage: 0.5 MG
     Route: 048
     Dates: start: 20181105, end: 20181126

REACTIONS (5)
  - Autoscopy [Not Recovered/Not Resolved]
  - Withdrawal syndrome [Not Recovered/Not Resolved]
  - Product substitution issue [Unknown]
  - Panic attack [Not Recovered/Not Resolved]
  - Drug screen negative [Unknown]
